FAERS Safety Report 11298239 (Version 1)
Quarter: 2015Q3

REPORT INFORMATION
  Report Type: Spontaneous
  Country: US (occurrence: US)
  Receive Date: 20150722
  Receipt Date: 20150722
  Transmission Date: 20151125
  Serious: No
  Sender: FDA-Public Use
  Company Number: US-ELI_LILLY_AND_COMPANY-US201108001638

PATIENT
  Sex: Female

DRUGS (11)
  1. PLAVIX [Concomitant]
     Active Substance: CLOPIDOGREL BISULFATE
     Dosage: UNK
     Dates: start: 200707, end: 2010
  2. EFFIENT [Suspect]
     Active Substance: PRASUGREL HYDROCHLORIDE
     Indication: STENT PLACEMENT
     Dosage: 5 MG, QD
     Dates: start: 2010
  3. OXYGEN. [Concomitant]
     Active Substance: OXYGEN
  4. NITROSTAT [Concomitant]
     Active Substance: NITROGLYCERIN
     Indication: CHEST PAIN
  5. ASPIRIN. [Concomitant]
     Active Substance: ASPIRIN
     Dosage: 81 MG, UNK
  6. CENOGEN [Concomitant]
  7. OMEPRAZOLE. [Concomitant]
     Active Substance: OMEPRAZOLE
  8. XOPENEX [Concomitant]
     Active Substance: LEVALBUTEROL HYDROCHLORIDE
  9. TEMAZEPAM. [Concomitant]
     Active Substance: TEMAZEPAM
  10. FISH OIL [Concomitant]
     Active Substance: FISH OIL
  11. DULCOLAX [Concomitant]
     Active Substance: BISACODYL OR DOCUSATE SODIUM

REACTIONS (4)
  - Nasal dryness [Unknown]
  - Epistaxis [Unknown]
  - Wrong technique in product usage process [Unknown]
  - Stress [Unknown]
